FAERS Safety Report 9384350 (Version 1)
Quarter: 2013Q3

REPORT INFORMATION
  Report Type: Spontaneous
  Country: AU (occurrence: AU)
  Receive Date: 20130705
  Receipt Date: 20130705
  Transmission Date: 20140515
  Serious: Yes (Hospitalization)
  Sender: FDA-Public Use
  Company Number: PHHY2013AU070433

PATIENT
  Sex: Female

DRUGS (1)
  1. ESTRADERM MX [Suspect]
     Dosage: UNK UKN, UNK
     Route: 062

REACTIONS (1)
  - Wrong technique in drug usage process [Unknown]
